FAERS Safety Report 25924634 (Version 1)
Quarter: 2025Q4

REPORT INFORMATION
  Report Type: Spontaneous
  Country: US (occurrence: US)
  Receive Date: 20251015
  Receipt Date: 20251015
  Transmission Date: 20260117
  Serious: No
  Sender: ELI LILLY AND COMPANY
  Company Number: US-ELI_LILLY_AND_COMPANY-US202510002515

PATIENT
  Age: 77 Year
  Sex: Female

DRUGS (2)
  1. ZEPBOUND [Suspect]
     Active Substance: TIRZEPATIDE
     Indication: Product used for unknown indication
     Dosage: 10 MG, UNKNOWN
     Route: 065
  2. LEVOXYL [Concomitant]
     Active Substance: LEVOTHYROXINE SODIUM
     Indication: Thyroid therapy

REACTIONS (12)
  - Influenza [Unknown]
  - Illness [Unknown]
  - Pain [Unknown]
  - Palpitations [Unknown]
  - Sleep disorder due to general medical condition, insomnia type [Unknown]
  - Piloerection [Unknown]
  - Chills [Unknown]
  - Feeling cold [Recovering/Resolving]
  - Feeding disorder [Unknown]
  - Nausea [Unknown]
  - Vomiting [Unknown]
  - Diarrhoea [Not Recovered/Not Resolved]
